FAERS Safety Report 13775211 (Version 1)
Quarter: 2017Q3

REPORT INFORMATION
  Report Type: Spontaneous
  Country: GB (occurrence: GB)
  Receive Date: 20170720
  Receipt Date: 20170720
  Transmission Date: 20171127
  Serious: Yes (Other)
  Sender: FDA-Public Use
  Company Number: GB-PFIZER INC-1645074

PATIENT
  Age: 39 Year
  Sex: Male

DRUGS (2)
  1. CIPROFLOXACIN. [Suspect]
     Active Substance: CIPROFLOXACIN
     Indication: PRODUCT USED FOR UNKNOWN INDICATION
     Dosage: 250 MG, UNK
     Dates: start: 20121217, end: 20121226
  2. AMOXICILLIN. [Concomitant]
     Active Substance: AMOXICILLIN
     Indication: PRODUCT USED FOR UNKNOWN INDICATION
     Dosage: UNK
     Dates: start: 20121213, end: 20121218

REACTIONS (4)
  - Food intolerance [Recovering/Resolving]
  - Abdominal discomfort [Unknown]
  - Visual impairment [Unknown]
  - Tendon disorder [Recovering/Resolving]

NARRATIVE: CASE EVENT DATE: 20121221
